FAERS Safety Report 9950341 (Version 2)
Quarter: 2014Q1

REPORT INFORMATION
  Report Type: Spontaneous
  Country: PR (occurrence: PR)
  Receive Date: 20140304
  Receipt Date: 20140304
  Transmission Date: 20141002
  Serious: Yes (Hospitalization)
  Sender: FDA-Public Use
  Company Number: PR-ABBVIE-13P-131-1065008-00

PATIENT
  Age: 54 Year
  Sex: Male
  Weight: 130.75 kg

DRUGS (4)
  1. HUMIRA [Suspect]
     Indication: PSORIASIS
     Route: 058
     Dates: start: 201203
  2. HUMIRA [Suspect]
     Route: 058
     Dates: start: 201206, end: 20130117
  3. VARIERIES OF MIX OF CREAMS [Concomitant]
     Indication: PSORIASIS
     Route: 061
  4. SHAMPOO [Concomitant]
     Indication: PSORIASIS
     Route: 061

REACTIONS (2)
  - Coronary artery bypass [Recovering/Resolving]
  - Hypercholesterolaemia [Recovering/Resolving]
